FAERS Safety Report 10441134 (Version 2)
Quarter: 2014Q3

REPORT INFORMATION
  Report Type: Spontaneous
  Country: US (occurrence: US)
  Receive Date: 20140909
  Receipt Date: 20140909
  Transmission Date: 20150326
  Serious: No
  Sender: FDA-Public Use
  Company Number: US-PFIZER INC-2014190674

PATIENT
  Age: 34 Year
  Sex: Female

DRUGS (3)
  1. ENBREL [Suspect]
     Active Substance: ETANERCEPT
     Dosage: UNK
     Dates: start: 2014
  2. AZULFIDINE [Suspect]
     Active Substance: SULFASALAZINE
     Indication: RHEUMATOID ARTHRITIS
     Dosage: 1000 UNK, TWICE A DAY
     Route: 048
     Dates: start: 20131024, end: 20140520
  3. ENBREL [Suspect]
     Active Substance: ETANERCEPT
     Indication: RHEUMATOID ARTHRITIS
     Dosage: 50 MG, WEEKLY
     Route: 058
     Dates: start: 20140414, end: 201406

REACTIONS (7)
  - Cough [Recovered/Resolved]
  - Injection site erythema [Not Recovered/Not Resolved]
  - Sinusitis [Recovered/Resolved]
  - Injection site swelling [Not Recovered/Not Resolved]
  - Hepatic enzyme increased [Recovered/Resolved]
  - Injection site bruising [Not Recovered/Not Resolved]
  - Injection site warmth [Not Recovered/Not Resolved]

NARRATIVE: CASE EVENT DATE: 20140526
